FAERS Safety Report 18334490 (Version 1)
Quarter: 2020Q3

REPORT INFORMATION
  Report Type: Spontaneous
  Country: US (occurrence: US)
  Receive Date: 20200930
  Receipt Date: 20200930
  Transmission Date: 20201103
  Serious: Yes (Hospitalization)
  Sender: FDA-Public Use
  Company Number: None

PATIENT
  Age: 63 Year
  Sex: Female
  Weight: 78 kg

DRUGS (1)
  1. CHLORTHALIDONE (CHLORTHALIDONE 25MG TAB) [Suspect]
     Active Substance: CHLORTHALIDONE
     Indication: HYPERTENSION
     Dosage: ?          OTHER DOSE:ONE?HALF TAB;?
     Route: 048
     Dates: start: 20190618, end: 20200327

REACTIONS (5)
  - Dizziness [None]
  - Hypokalaemia [None]
  - Oropharyngeal pain [None]
  - Chest pain [None]
  - Dyspnoea [None]

NARRATIVE: CASE EVENT DATE: 20200325
